FAERS Safety Report 19165331 (Version 1)
Quarter: 2021Q2

REPORT INFORMATION
  Report Type: Report from Study
  Country: US (occurrence: US)
  Receive Date: 20210421
  Receipt Date: 20210421
  Transmission Date: 20210717
  Serious: Yes (Hospitalization, Other)
  Sender: FDA-Public Use
  Company Number: US-SEATTLE GENETICS-2021SGN02302

PATIENT
  Sex: Female

DRUGS (1)
  1. TUCATINIB [Suspect]
     Active Substance: TUCATINIB
     Indication: BREAST CANCER

REACTIONS (5)
  - Abdominal pain upper [Unknown]
  - General physical health deterioration [Unknown]
  - Epistaxis [Unknown]
  - Renal failure [Unknown]
  - Asthenia [Unknown]
